FAERS Safety Report 8839871 (Version 3)
Quarter: 2012Q4

REPORT INFORMATION
  Report Type: Report from Study
  Country: US (occurrence: US)
  Receive Date: 20121015
  Receipt Date: 20121129
  Transmission Date: 20130627
  Serious: Yes (Hospitalization)
  Sender: FDA-Public Use
  Company Number: US-BRISTOL-MYERS SQUIBB COMPANY-17027046

PATIENT
  Age: 52 Year
  Sex: Female

DRUGS (3)
  1. MDX-1106 [Suspect]
     Indication: NON-SMALL CELL LUNG CANCER
     Dosage: Courses:3
     Route: 040
     Dates: start: 20120815, end: 20120927
  2. CARBOPLATIN [Suspect]
     Indication: NON-SMALL CELL LUNG CANCER
     Dosage: Courses:3
     Route: 040
     Dates: start: 20120815, end: 20120927
  3. PACLITAXEL [Suspect]
     Indication: NON-SMALL CELL LUNG CANCER
     Dosage: Courses:3
     Route: 040
     Dates: start: 20120815, end: 20120927

REACTIONS (2)
  - Back pain [Recovered/Resolved]
  - Anaemia [Recovered/Resolved]
